FAERS Safety Report 7241077-8 (Version None)
Quarter: 2011Q1

REPORT INFORMATION
  Report Type: 
  Country: None (occurrence: None)
  Receive Date: 20110120
  Receipt Date: 20110120
  Transmission Date: 20110831
  Serious: No
  Sender: FDA-Public Use
  Company Number: None

PATIENT
  Age: 74 Year
  Sex: Female

DRUGS (1)
  1. DISOPYRAMIDE [Suspect]
     Dosage: 100MG ONCE A DAY PO
     Route: 048

REACTIONS (1)
  - HYPOGLYCAEMIA [None]
